FAERS Safety Report 9115478 (Version 1)
Quarter: 2013Q1

REPORT INFORMATION
  Report Type: Spontaneous
  Country: IT (occurrence: IT)
  Receive Date: 20130225
  Receipt Date: 20130225
  Transmission Date: 20140127
  Serious: Yes (Hospitalization)
  Sender: FDA-Public Use
  Company Number: IT-BAYER-2013-023429

PATIENT
  Age: 40 Year
  Sex: Male

DRUGS (1)
  1. ASPIRINA [Suspect]
     Indication: HEADACHE
     Dosage: DAILY DOSE 100 MG
     Route: 048
     Dates: start: 20120507, end: 20120507

REACTIONS (2)
  - Rash [Recovered/Resolved]
  - Hypotension [Recovered/Resolved]
